FAERS Safety Report 10183866 (Version 1)
Quarter: 2014Q2

REPORT INFORMATION
  Report Type: Spontaneous
  Country: AT (occurrence: AT)
  Receive Date: 20140520
  Receipt Date: 20140520
  Transmission Date: 20141212
  Serious: Yes (Hospitalization, Other)
  Sender: FDA-Public Use
  Company Number: AT-TEVA-482328ISR

PATIENT
  Age: 71 Year
  Sex: Female

DRUGS (6)
  1. QUETIAPIN [Suspect]
     Indication: DEPRESSION
     Dosage: 225 MILLIGRAM DAILY;
  2. AMITRIPTYLIN [Suspect]
     Indication: DEPRESSION
     Dosage: SLOWLY INCREASED TO 150 MG/DAY
  3. PROTHIPENDYL [Suspect]
     Indication: DEPRESSION
     Dosage: 80 MILLIGRAM DAILY;
  4. ETILEFRIN TROPFEN 22,5MG [Suspect]
     Indication: HYPOTENSION
     Dosage: 22.5 MILLIGRAM DAILY;
  5. PROPRANOLOL [Suspect]
     Indication: HEART RATE INCREASED
     Dosage: 10 MILLIGRAM DAILY;
  6. PROPRANOLOL [Suspect]
     Indication: RESTLESSNESS

REACTIONS (5)
  - Subileus [Recovering/Resolving]
  - Abdominal distension [Recovering/Resolving]
  - Nausea [Recovering/Resolving]
  - Decreased appetite [Recovering/Resolving]
  - Abdominal distension [Recovering/Resolving]
